FAERS Safety Report 5965552-9 (Version None)
Quarter: 2008Q4

REPORT INFORMATION
  Report Type: 
  Country: None (occurrence: None)
  Receive Date: 20081121
  Receipt Date: 20081028
  Transmission Date: 20090506
  Serious: Yes (Hospitalization)
  Sender: FDA-Public Use
  Company Number: 2008-186643-NL

PATIENT
  Age: 19 Year
  Sex: Female

DRUGS (2)
  1. MIRTAZAPINE [Suspect]
  2. ALCOHOL [Suspect]

REACTIONS (7)
  - ALANINE AMINOTRANSFERASE INCREASED [None]
  - ALCOHOL ABUSE [None]
  - ASPARTATE AMINOTRANSFERASE INCREASED [None]
  - DEPRESSED LEVEL OF CONSCIOUSNESS [None]
  - GAMMA-GLUTAMYLTRANSFERASE INCREASED [None]
  - OVERDOSE [None]
  - SOMNOLENCE [None]
